FAERS Safety Report 11498504 (Version 1)
Quarter: 2015Q3

REPORT INFORMATION
  Report Type: Spontaneous
  Country: US (occurrence: US)
  Receive Date: 20150911
  Receipt Date: 20150911
  Transmission Date: 20151125
  Serious: No
  Sender: FDA-Public Use
  Company Number: US-BIOMARINAP-US-2015-107292

PATIENT
  Age: 53 Year
  Sex: Female
  Weight: 82.5 kg

DRUGS (1)
  1. KUVAN [Suspect]
     Active Substance: SAPROPTERIN DIHYDROCHLORIDE
     Indication: PRODUCT USED FOR UNKNOWN INDICATION
     Dosage: 1700 MG, QD
     Route: 048

REACTIONS (1)
  - Gastritis [Unknown]

NARRATIVE: CASE EVENT DATE: 20150831
